FAERS Safety Report 7096871 (Version 4)
Quarter: 2018Q4

REPORT INFORMATION
  Report Type: Spontaneous
  Country: JP (occurrence: JP)
  Receive Date: 20090826
  Receipt Date: 20181023
  Transmission Date: 20190205
  Serious: Yes (Hospitalization)
  Sender: FDA-Public Use
  Company Number: PHHY2009JP35151

PATIENT
  Age: 84 Year
  Sex: Female
  Weight: 52 kg

DRUGS (8)
  1. DIOVAN [Suspect]
     Active Substance: VALSARTAN
     Indication: HYPERTENSION
     Dosage: 80 MG, QD
     Route: 048
     Dates: start: 20090425, end: 200907
  2. LUPRAC [Concomitant]
     Active Substance: TORSEMIDE
     Indication: HYPERTENSION
     Dosage: 4 MG, QD
     Route: 048
     Dates: start: 20080415
  3. MERISLON [Concomitant]
     Active Substance: BETAHISTINE MESILATE
     Indication: DIZZINESS
     Dosage: 6 MG, QD
     Route: 048
     Dates: start: 20080415
  4. LIPITOR [Concomitant]
     Active Substance: ATORVASTATIN CALCIUM
     Indication: HYPERLIPIDAEMIA
     Dosage: 10 MG, QD
     Route: 048
     Dates: start: 20080415
  5. DIOVAN [Suspect]
     Active Substance: VALSARTAN
     Dosage: 80 MG, QD
     Route: 048
     Dates: start: 20090806
  6. HALCION [Concomitant]
     Active Substance: TRIAZOLAM
     Indication: INSOMNIA
     Dosage: 0.25 MG, QD
     Route: 048
     Dates: start: 20080415
  7. CO-DIOVAN [Suspect]
     Active Substance: HYDROCHLOROTHIAZIDE\VALSARTAN
     Indication: HYPERTENSION
     Dosage: 80 MG/6.25 MG
     Route: 048
     Dates: start: 20090716, end: 20090806
  8. BAYASPIRIN [Concomitant]
     Active Substance: ASPIRIN
     Indication: CEREBRAL INFARCTION
     Dosage: 100 MG, QD
     Route: 048
     Dates: start: 20080415

REACTIONS (13)
  - Heart rate increased [Unknown]
  - Rales [Unknown]
  - Malaise [Unknown]
  - Ventricular extrasystoles [Unknown]
  - Blood pressure increased [Unknown]
  - Dizziness [Unknown]
  - Dyspnoea [Unknown]
  - Wheezing [Unknown]
  - Oedema peripheral [Unknown]
  - Face oedema [Unknown]
  - Atrial fibrillation [Unknown]
  - Blood pressure decreased [Unknown]
  - Cardiac failure [Unknown]

NARRATIVE: CASE EVENT DATE: 20090716
